FAERS Safety Report 7232183-2 (Version None)
Quarter: 2011Q1

REPORT INFORMATION
  Report Type: 
  Country: None (occurrence: None)
  Receive Date: 20110119
  Receipt Date: 20110106
  Transmission Date: 20110831
  Serious: No
  Sender: FDA-Public Use
  Company Number: US-BIOGENIDEC-2011BI000937

PATIENT
  Sex: Male

DRUGS (1)
  1. TYSABRI [Suspect]
     Indication: MULTIPLE SCLEROSIS
     Route: 042
     Dates: end: 20100401

REACTIONS (4)
  - MEMORY IMPAIRMENT [None]
  - COORDINATION ABNORMAL [None]
  - THINKING ABNORMAL [None]
  - SECONDARY PROGRESSIVE MULTIPLE SCLEROSIS [None]
